FAERS Safety Report 8354160-0 (Version None)
Quarter: 2012Q2

REPORT INFORMATION
  Report Type: 
  Country: None (occurrence: None)
  Receive Date: 20120511
  Receipt Date: 20120501
  Transmission Date: 20120825
  Serious: Yes (Hospitalization, Other)
  Sender: FDA-Public Use
  Company Number: JP-PFIZER INC-2012106923

PATIENT
  Age: 55 Year
  Sex: Female

DRUGS (5)
  1. FLUCAM [Concomitant]
     Dosage: UNK
  2. DEPAS [Concomitant]
     Dosage: UNK
  3. AZULFIDINE [Suspect]
     Indication: RHEUMATOID ARTHRITIS
     Dosage: 1 G, 1X/DAY
     Route: 048
     Dates: start: 20120420
  4. MEDROL [Concomitant]
     Dosage: UNK
  5. NORVASC [Concomitant]
     Dosage: UNK

REACTIONS (7)
  - PULMONARY OEDEMA [None]
  - PLEURAL EFFUSION [None]
  - LIVER DISORDER [None]
  - RASH [None]
  - HEADACHE [None]
  - DRUG RASH WITH EOSINOPHILIA AND SYSTEMIC SYMPTOMS [None]
  - MALAISE [None]
